FAERS Safety Report 24560091 (Version 1)
Quarter: 2024Q4

REPORT INFORMATION
  Report Type: Spontaneous
  Country: US (occurrence: US)
  Receive Date: 20241029
  Receipt Date: 20241029
  Transmission Date: 20250115
  Serious: Yes (Life-Threatening, Hospitalization)
  Sender: STRIDES
  Company Number: US-STRIDES ARCOLAB LIMITED-2024SP013819

PATIENT
  Age: 7 Decade
  Sex: Female

DRUGS (13)
  1. TORSEMIDE [Suspect]
     Active Substance: TORSEMIDE
     Indication: Chronic left ventricular failure
     Dosage: UNK
     Route: 065
  2. TORSEMIDE [Suspect]
     Active Substance: TORSEMIDE
     Dosage: UNK, DOSE REDUCED
     Route: 065
  3. TORSEMIDE [Suspect]
     Active Substance: TORSEMIDE
     Dosage: UNK
     Route: 065
  4. SPIRONOLACTONE [Suspect]
     Active Substance: SPIRONOLACTONE
     Indication: Chronic left ventricular failure
     Dosage: UNK
     Route: 065
  5. SPIRONOLACTONE [Suspect]
     Active Substance: SPIRONOLACTONE
     Dosage: UNK, DOSE REDUCED
     Route: 065
  6. SPIRONOLACTONE [Suspect]
     Active Substance: SPIRONOLACTONE
     Dosage: UNK
     Route: 065
  7. PAZOPANIB [Concomitant]
     Active Substance: PAZOPANIB
     Indication: Leiomyosarcoma metastatic
     Dosage: UNK
     Route: 065
  8. METOPROLOL SUCCINATE [Concomitant]
     Active Substance: METOPROLOL SUCCINATE
     Indication: Cardiomyopathy
     Dosage: UNK
     Route: 065
  9. ASPIRIN [Concomitant]
     Active Substance: ASPIRIN
     Indication: Acute myocardial infarction
     Dosage: UNK
     Route: 065
  10. ATORVASTATIN [Concomitant]
     Active Substance: ATORVASTATIN
     Indication: Acute myocardial infarction
     Dosage: UNK
     Route: 065
  11. MILRINONE [Concomitant]
     Active Substance: MILRINONE
     Indication: Chronic left ventricular failure
     Dosage: UNK
     Route: 065
  12. AMIODARONE [Concomitant]
     Active Substance: AMIODARONE
     Indication: Atrial fibrillation
     Dosage: UNK
     Route: 065
  13. APIXABAN [Concomitant]
     Active Substance: APIXABAN
     Indication: Atrial fibrillation
     Dosage: UNK
     Route: 065

REACTIONS (3)
  - Cardiac failure acute [Recovered/Resolved]
  - Rebound effect [Recovered/Resolved]
  - Off label use [Unknown]
